FAERS Safety Report 4674672-0 (Version None)
Quarter: 2005Q2

REPORT INFORMATION
  Report Type: 
  Country: None (occurrence: None)
  Receive Date: 20050526
  Receipt Date: 20050517
  Transmission Date: 20051028
  Serious: Yes (Disabling)
  Sender: FDA-Public Use
  Company Number: GB-GLAXOSMITHKLINE-B0381410A

PATIENT
  Age: 43 Year
  Sex: Female
  Weight: 45 kg

DRUGS (3)
  1. ZYBAN [Suspect]
     Dosage: 150MG UNKNOWN
     Route: 048
     Dates: start: 20050503, end: 20050510
  2. NICOTINE [Concomitant]
     Route: 062
     Dates: start: 20050411, end: 20050510
  3. NICOTEL [Concomitant]
     Dosage: 6MG SINGLE DOSE
     Route: 048
     Dates: start: 20050510

REACTIONS (4)
  - AGITATION [None]
  - HEADACHE [None]
  - PERSONALITY CHANGE [None]
  - PSYCHOTIC DISORDER [None]
